FAERS Safety Report 12538278 (Version 2)
Quarter: 2016Q3

REPORT INFORMATION
  Report Type: Spontaneous
  Country: IQ (occurrence: IQ)
  Receive Date: 20160707
  Receipt Date: 20160825
  Transmission Date: 20161109
  Serious: Yes (Other)
  Sender: FDA-Public Use
  Company Number: IQ-ABBVIE-16P-081-1669680-00

PATIENT
  Sex: Female

DRUGS (1)
  1. DEPAKIN [Suspect]
     Active Substance: VALPROATE SODIUM
     Indication: GENERALISED TONIC-CLONIC SEIZURE
     Dosage: 200 MG/ML
     Route: 065
     Dates: start: 20091001

REACTIONS (3)
  - Live birth [Unknown]
  - Oligohydramnios [Unknown]
  - Exposure during pregnancy [Unknown]
